FAERS Safety Report 24119093 (Version 1)
Quarter: 2024Q3

REPORT INFORMATION
  Report Type: Spontaneous
  Country: US (occurrence: US)
  Receive Date: 20240722
  Receipt Date: 20240722
  Transmission Date: 20241017
  Serious: Yes (Other)
  Sender: BRISTOL MYERS SQUIBB
  Company Number: US-BRISTOL-MYERS SQUIBB COMPANY-2024-114611

PATIENT
  Age: 81 Year
  Sex: Female
  Weight: 82.33 kg

DRUGS (28)
  1. REVLIMID [Suspect]
     Active Substance: LENALIDOMIDE
     Indication: Plasma cell myeloma
     Dates: start: 201509
  2. REVLIMID [Suspect]
     Active Substance: LENALIDOMIDE
     Dosage: FREQUENCY: 10 MG A DAY
     Dates: start: 20160713
  3. REVLIMID [Suspect]
     Active Substance: LENALIDOMIDE
     Dosage: FREQUENCY: 5 MG A DAY
     Dates: start: 20170209
  4. DIPHENHYDRAMINE [Concomitant]
     Active Substance: DIPHENHYDRAMINE
     Indication: Product used for unknown indication
     Dosage: ORAL 25 MG TABLET TAKE ONE TABLET 12 AND ONE TABLET 1 HOUR BEFORE CT SCAN.
     Route: 048
  5. ALBUTEROL SULFATE [Concomitant]
     Active Substance: ALBUTEROL SULFATE
     Indication: Wheezing
     Dosage: 90 MCG/ACTUATION 90 MCG/ACTUATION HFA AEROSOL INHALER 2 PUFF INHALED EVERY 4 TO 6 HOURS AS NEEDED FO
  6. ALBUTEROL SULFATE [Concomitant]
     Active Substance: ALBUTEROL SULFATE
     Indication: Dyspnoea
  7. ASPIRIN [Concomitant]
     Active Substance: ASPIRIN
     Indication: Product used for unknown indication
     Dosage: 1 TABLET,CHEWABLE ORALLY DAILY.
     Route: 048
  8. GABAPENTIN [Concomitant]
     Active Substance: GABAPENTIN
     Indication: Product used for unknown indication
     Dosage: 1 CAPSULE ORALLY EVERY DAY AT BEDTIME.
     Route: 048
  9. ACETAMINOPHEN\HYDROCODONE [Concomitant]
     Active Substance: ACETAMINOPHEN\HYDROCODONE
     Indication: Pain
     Dosage: TABLET MG 5-325 MG MG-325 5. 1 TABLET ORALLY EVERY 4 HOURS AS NEEDED FOR PAIN. MAY CAUSE CONSTIPATIO
     Route: 048
  10. CARVEDILOL [Concomitant]
     Active Substance: CARVEDILOL
     Indication: Product used for unknown indication
     Dosage: 1 TABLET ORALLY TWICE A DAY
     Route: 048
  11. HYDROCHLOROTHIAZIDE [Concomitant]
     Active Substance: HYDROCHLOROTHIAZIDE
     Indication: Product used for unknown indication
     Dosage: 1 TABLET PO DAILY
     Route: 048
  12. MIDAZOLAM [Concomitant]
     Active Substance: MIDAZOLAM
     Indication: Product used for unknown indication
     Dosage: 5 MG/ML SOLUTION 10 MG PUSH AS DIRECTED.
     Route: 042
  13. MAGNESIUM CHLORIDE [Concomitant]
     Active Substance: MAGNESIUM CHLORIDE
     Indication: Product used for unknown indication
     Dosage: 1 TABLET, DELAYED RELEASE (DR/EC) ORALLY EVERY 4 HOURS. TAKE ONE TABLET EVERY 4 HOURS WHILE AWAKE. T
     Route: 048
  14. ATORVASTATIN [Concomitant]
     Active Substance: ATORVASTATIN
     Indication: Product used for unknown indication
     Dosage: 1 TABLET(S) PO DAILY
     Route: 048
  15. ACYCLOVIR [Concomitant]
     Active Substance: ACYCLOVIR
     Indication: Product used for unknown indication
     Dosage: 1 TABLET ORALLY 2 TIMES PER DAY.
     Route: 048
  16. DULOXETINE [Concomitant]
     Active Substance: DULOXETINE
     Indication: Product used for unknown indication
     Dosage: CAPSULE, DELAYED RELEASE (DR/EC) 1 CAPSULE, DELAYED RELEASE (DR/EC) ORALLY ONCE DAILY AT BEDTIME.
     Route: 048
  17. FUROSEMIDE [Concomitant]
     Active Substance: FUROSEMIDE
     Indication: Oedema
     Dosage: TAKE 1 TABLET BY MOUTH ONCE DAILY AS NEEDED FOR EDEMA
     Route: 048
  18. FLUMAZENIL [Concomitant]
     Active Substance: FLUMAZENIL
     Indication: Product used for unknown indication
     Dosage: 0.1 MG/ML SOLUTION 0.2 MG INTRAVENOUS AS DIRECTED.
     Route: 042
  19. DEXAMETHASONE [Concomitant]
     Active Substance: DEXAMETHASONE
     Indication: Product used for unknown indication
     Dosage: 1 TABLET ORALLY AS DIRECTED. TAKE ONE TABLET DALLY ON DAYS 2-4 OF EACH CHEMO CYCLE (EVERY 28 DAYS)
     Route: 048
  20. OMEPRAZOLE [Concomitant]
     Active Substance: OMEPRAZOLE
     Indication: Product used for unknown indication
     Dosage: DELAYED RELEASE CAPSULE 20 MG CAPSULE, DELAYED RELEASE (DR/EC) 1 CAPSULE, DELAYED RELEASE (DR/EC) OR
     Route: 048
     Dates: start: 20101122
  21. PREDNISONE [Concomitant]
     Active Substance: PREDNISONE
     Indication: Product used for unknown indication
     Dosage: TAKE 3 TABLETS 12 HOURS AND 3 TABLETS 1 HOUR BEFORE CT SCAN
     Route: 048
  22. PROCHLORPERAZINE [Concomitant]
     Active Substance: PROCHLORPERAZINE
     Indication: Nausea
     Dosage: 1 TABLET(S) ORALLY EVERY 4 HOURS AS NEEDED FOR NAUSEA.
     Route: 048
  23. FAMOTIDINE [Concomitant]
     Active Substance: FAMOTIDINE
     Indication: Product used for unknown indication
     Dosage: 2 TABLET ORALLY AS DIRECTED. 2 TABLETS 12 HOURS AND 2 TABLETS 1 HOUR BEFORE CT SCAN
     Route: 048
  24. LORAZEPAM [Concomitant]
     Active Substance: LORAZEPAM
     Indication: Anxiety
     Dosage: 0.5 MG PO PRN ANXIETY
     Route: 048
  25. AFLURIA NOS [Concomitant]
     Active Substance: INFLUENZA VIRUS VACCINE TRIVALENT TYPE A+B AFLURIA
     Indication: Product used for unknown indication
     Dosage: (INFLUENZA VIRUS VACCINE (PF) IM TRI-SPLIT (5 YR + OLDER)) 45 MCG (15 MCG X 3)/0.5 ML SYRINGE 0.5 ML
     Route: 030
  26. SENNOSIDES [Concomitant]
     Active Substance: SENNOSIDES
     Indication: Constipation
     Dosage: 1 TABLET(S) PO AS DIRECTED PRN CONSTIPATION
     Route: 048
  27. INFLUENZA VIRUS VACCINE [Concomitant]
     Active Substance: INFLUENZA VIRUS VACCINE
     Indication: Product used for unknown indication
     Dosage: IM QUAD-SPLIT (6 MONTHS + OLDER) 60 MCG (15 MCG X 4)/0.5 ML SUSPENSION 0.5 ML INTRAMUSCULARLY ONCE.
     Route: 030
     Dates: start: 20101122
  28. LOMOTIL [Concomitant]
     Active Substance: ATROPINE SULFATE\DIPHENOXYLATE HYDROCHLORIDE
     Indication: Diarrhoea
     Dosage: (DIPHENOXYLATE-ATROPINE ORAL 2.5 MG-0.025 MG) 2.5-0.025 MG TABLET 2.5 MG ORALLY 4 TIMES PER DAY AS N
     Route: 048

REACTIONS (1)
  - Neutropenia [Unknown]
